FAERS Safety Report 21364021 (Version 1)
Quarter: 2022Q3

REPORT INFORMATION
  Report Type: Spontaneous
  Country: US (occurrence: None)
  Receive Date: 20220921
  Receipt Date: 20220921
  Transmission Date: 20221026
  Serious: Yes (Death)
  Sender: FDA-Public Use
  Company Number: None

PATIENT
  Age: 15 Year
  Sex: Female

DRUGS (18)
  1. TADALAFIL [Suspect]
     Active Substance: TADALAFIL
     Indication: Pulmonary arterial hypertension
     Dosage: FREQUENCY : DAILY;?
     Route: 048
     Dates: start: 20220202, end: 20220909
  2. albuterol hfa 90mcg/act inhaler [Concomitant]
     Dates: start: 20211028, end: 20220909
  3. budesonide er 9mg [Concomitant]
     Dates: start: 20211227, end: 20220909
  4. flonase 50mcg/act nasal [Concomitant]
     Dates: start: 20211028, end: 20220909
  5. advair hfa 115-21 mct/act [Concomitant]
     Dates: start: 20211028, end: 20220909
  6. furosemide 10mg/ml [Concomitant]
     Dates: start: 20220228, end: 20220529
  7. HYDROCHLOROTHIAZIDE [Concomitant]
     Active Substance: HYDROCHLOROTHIAZIDE
     Dates: start: 20220228, end: 20220909
  8. atrovent 0.02% [Concomitant]
     Dates: start: 20211027, end: 20220909
  9. LANSOPRAZOLE [Concomitant]
     Active Substance: LANSOPRAZOLE
     Dates: start: 20220221, end: 20220909
  10. loratadine 5mg/5ml [Concomitant]
     Dates: start: 20211028, end: 20220909
  11. MELATONIN [Concomitant]
     Active Substance: MELATONIN
     Dates: start: 20220113, end: 20220909
  12. MONTELUKAST [Concomitant]
     Active Substance: MONTELUKAST SODIUM
     Dates: start: 20211028, end: 20220909
  13. DEKAS PLUS [Concomitant]
     Dates: start: 20220114, end: 20220909
  14. k-phos 500mg [Concomitant]
     Dates: start: 20220113, end: 20220909
  15. simethicone 20mg/0.3ml [Concomitant]
     Dates: start: 20210405, end: 20220909
  16. sodium chloride 7% neb sol [Concomitant]
     Dates: start: 20220227, end: 20220909
  17. spirinolactone 25mg/5ml [Concomitant]
     Dates: start: 20211227, end: 20220225
  18. TRIAMCINOLONE ACETONIDE [Concomitant]
     Active Substance: TRIAMCINOLONE ACETONIDE
     Dates: start: 20210203, end: 20220909

REACTIONS (2)
  - Hypotension [None]
  - Hypoxia [None]

NARRATIVE: CASE EVENT DATE: 20220909
